FAERS Safety Report 24178702 (Version 1)
Quarter: 2024Q3

REPORT INFORMATION
  Report Type: Spontaneous
  Country: US (occurrence: US)
  Receive Date: 20240806
  Receipt Date: 20240806
  Transmission Date: 20241016
  Serious: No
  Sender: SANOFI AVENTIS
  Company Number: US-SA-SAC20240805001469

PATIENT
  Age: 67 Year
  Sex: Female

DRUGS (21)
  1. DUPIXENT [Suspect]
     Active Substance: DUPILUMAB
     Indication: Asthma
     Dosage: 1 DF, QOW
     Route: 058
  2. VITAMIN U [Concomitant]
     Dosage: 100MG
  3. VITAMIN U [Concomitant]
     Dosage: 100MG
  4. KINERET [Concomitant]
     Active Substance: ANAKINRA
  5. MULTIVITAMINS + IRON [Concomitant]
  6. TEGRETOL [Concomitant]
     Active Substance: CARBAMAZEPINE
  7. SINGULAIR [Concomitant]
     Active Substance: MONTELUKAST SODIUM
  8. HYDROXYCHLOROQUINE SULFATE [Concomitant]
     Active Substance: HYDROXYCHLOROQUINE SULFATE
  9. TRAMADOL [Concomitant]
     Active Substance: TRAMADOL\TRAMADOL HYDROCHLORIDE
  10. GUAIFENESIN [Concomitant]
     Active Substance: GUAIFENESIN
  11. CODEINE [Concomitant]
     Active Substance: CODEINE
  12. TELMISARTAN [Concomitant]
     Active Substance: TELMISARTAN
  13. BEZTRO [Concomitant]
     Dosage: UNK
  14. METOLAZONE [Concomitant]
     Active Substance: METOLAZONE
     Dosage: UNK
  15. PANTOPRAZOLE SODIUM [Concomitant]
     Active Substance: PANTOPRAZOLE SODIUM
     Dosage: UNK
  16. POTASSIUM CHLORIDE [Concomitant]
     Active Substance: POTASSIUM CHLORIDE
     Dosage: UNK MG
  17. KEPPRA XR [Concomitant]
     Active Substance: LEVETIRACETAM
  18. LEVOCETIRIZINE DIHYDROCHLORIDE [Concomitant]
     Active Substance: LEVOCETIRIZINE DIHYDROCHLORIDE
     Dosage: UNK
  19. ACYCLOVIR KDC [Concomitant]
     Dosage: UNK
  20. ARAVA [Concomitant]
     Active Substance: LEFLUNOMIDE
     Dosage: UNK
  21. MORPHINE SULFATE [Concomitant]
     Active Substance: MORPHINE SULFATE

REACTIONS (1)
  - Dizziness [Recovered/Resolved]

NARRATIVE: CASE EVENT DATE: 20240601
